FAERS Safety Report 4808380-X (Version None)
Quarter: 2005Q4

REPORT INFORMATION
  Report Type: 
  Country: None (occurrence: None)
  Receive Date: 20051021
  Receipt Date: 20040106
  Transmission Date: 20060501
  Serious: Yes (Hospitalization)
  Sender: FDA-Public Use
  Company Number: FR_040103368

PATIENT
  Age: 55 Year
  Sex: Female

DRUGS (4)
  1. ZYPREXA [Suspect]
     Indication: CHILDHOOD PSYCHOSIS
     Dosage: 10 MG/DAY
     Dates: start: 20030815, end: 20031030
  2. ARTANE [Concomitant]
  3. DAFLON (DIOSMIN) [Concomitant]
  4. TERCIAN (CYAMEMAZINE) [Concomitant]

REACTIONS (5)
  - ANAEMIA [None]
  - ERYTHROPOIESIS ABNORMAL [None]
  - LEUKOPENIA [None]
  - NEUTROPHIL COUNT DECREASED [None]
  - THROMBOCYTOPENIA [None]
